FAERS Safety Report 9586118 (Version 2)
Quarter: 2013Q4

REPORT INFORMATION
  Report Type: Spontaneous
  Country: FR (occurrence: FR)
  Receive Date: 20131003
  Receipt Date: 20131213
  Transmission Date: 20140711
  Serious: No
  Sender: FDA-Public Use
  Company Number: FR-JNJFOC-20130916072

PATIENT
  Age: 34 Year
  Sex: Female
  Weight: 73.6 kg

DRUGS (2)
  1. XEPLION [Suspect]
     Indication: PRODUCT USED FOR UNKNOWN INDICATION
     Route: 030
     Dates: start: 20130408, end: 20130603
  2. XEPLION [Suspect]
     Indication: PRODUCT USED FOR UNKNOWN INDICATION
     Route: 030
     Dates: start: 20130604

REACTIONS (4)
  - Furuncle [Recovering/Resolving]
  - Abscess limb [Unknown]
  - Abscess of eyelid [Recovered/Resolved]
  - Blister infected [Unknown]
